FAERS Safety Report 17111556 (Version 5)
Quarter: 2020Q3

REPORT INFORMATION
  Report Type: Report from Study
  Country: US (occurrence: US)
  Receive Date: 20191204
  Receipt Date: 20200928
  Transmission Date: 20201102
  Serious: Yes (Other)
  Sender: FDA-Public Use
  Company Number: US-ROCHE-2485970

PATIENT
  Age: 87 Year
  Sex: Female
  Weight: 99.1 kg

DRUGS (35)
  1. METOPROLOL TARTRATE. [Concomitant]
     Active Substance: METOPROLOL TARTRATE
     Indication: HYPERTENSION
     Route: 048
     Dates: start: 20191121, end: 20191122
  2. NORVASC [Concomitant]
     Active Substance: AMLODIPINE BESYLATE
     Indication: HYPERTENSION
     Route: 048
     Dates: start: 20191122
  3. PEPCID [Concomitant]
     Active Substance: FAMOTIDINE
     Dates: start: 20191118, end: 20191120
  4. CIPROFLOXACIN. [Concomitant]
     Active Substance: CIPROFLOXACIN
     Indication: URINARY TRACT INFECTION
     Route: 048
     Dates: start: 20200117, end: 20200127
  5. TENECTEPLASE [Suspect]
     Active Substance: TENECTEPLASE
     Indication: THROMBOLYSIS
     Route: 042
     Dates: start: 20191118
  6. ELIQUIS [Concomitant]
     Active Substance: APIXABAN
     Indication: ATRIAL FIBRILLATION
     Route: 048
     Dates: start: 20191211
  7. DECADRON [Concomitant]
     Active Substance: DEXAMETHASONE
     Indication: VASOSPASM
     Route: 042
     Dates: start: 20191119, end: 20191121
  8. HYDROCORTISONE. [Concomitant]
     Active Substance: HYDROCORTISONE
     Indication: HAEMORRHOIDS
     Dosage: 1 OTHER
     Route: 061
     Dates: start: 20191125, end: 20191125
  9. DULCOLAXO [Concomitant]
     Dates: start: 20191123, end: 20191123
  10. LASIX [Concomitant]
     Active Substance: FUROSEMIDE
     Indication: PLEURAL EFFUSION
     Route: 042
     Dates: start: 20191120, end: 20191120
  11. DOCUSATE [Concomitant]
     Active Substance: DOCUSATE
     Route: 048
     Dates: start: 20191118, end: 20191226
  12. ASPIRIN. [Concomitant]
     Active Substance: ASPIRIN
     Indication: PROPHYLAXIS
     Route: 048
     Dates: start: 20191123, end: 20191211
  13. FENTANYL. [Concomitant]
     Active Substance: FENTANYL
     Indication: SEDATION
     Route: 042
     Dates: start: 20191118, end: 20191118
  14. VERAPAMIL [Concomitant]
     Active Substance: VERAPAMIL HYDROCHLORIDE
     Indication: VASOSPASM
     Route: 042
     Dates: start: 20191118, end: 20191118
  15. LIDOCAINE. [Concomitant]
     Active Substance: LIDOCAINE
     Indication: BACK PAIN
     Route: 058
     Dates: start: 20191118, end: 20191118
  16. HEPARIN [Concomitant]
     Active Substance: HEPARIN SODIUM
     Dosage: 3 OTHER
     Route: 013
     Dates: start: 20191118, end: 20191118
  17. LIPITOR [Concomitant]
     Active Substance: ATORVASTATIN CALCIUM
     Indication: PROPHYLAXIS
     Route: 048
     Dates: start: 20191119
  18. PERIDEX [Concomitant]
     Active Substance: CHLORHEXIDINE GLUCONATE
     Route: 048
     Dates: start: 20191118, end: 20191120
  19. ROCURONIUM [Concomitant]
     Active Substance: ROCURONIUM BROMIDE
     Indication: ENDOTRACHEAL INTUBATION
     Route: 042
     Dates: start: 20191118, end: 20191118
  20. PROPOFOL. [Concomitant]
     Active Substance: PROPOFOL
     Indication: SEDATION
     Dosage: 20 OTHER
     Route: 042
     Dates: start: 20191118, end: 20191120
  21. LIDOCAINE. [Concomitant]
     Active Substance: LIDOCAINE
     Route: 061
     Dates: start: 20191209, end: 20191227
  22. ETOMIDATE. [Concomitant]
     Active Substance: ETOMIDATE
     Indication: ENDOTRACHEAL INTUBATION
     Route: 042
     Dates: start: 20191118, end: 20191118
  23. ACETAMINOPHEN. [Concomitant]
     Active Substance: ACETAMINOPHEN
     Indication: PROPHYLAXIS
     Route: 048
     Dates: start: 20191118
  24. TOPROL XL [Concomitant]
     Active Substance: METOPROLOL SUCCINATE
     Indication: HYPERTENSION
     Route: 048
     Dates: end: 20191217
  25. DIPHENHYDRAMINE. [Concomitant]
     Active Substance: DIPHENHYDRAMINE
     Route: 048
     Dates: start: 20200218, end: 20200218
  26. HYDRALAZINE [Concomitant]
     Active Substance: HYDRALAZINE HYDROCHLORIDE
     Indication: HYPERTENSION
     Route: 042
     Dates: start: 20191118, end: 20191118
  27. POTASSIUM CHLORIDE. [Concomitant]
     Active Substance: POTASSIUM CHLORIDE
     Dosage: 20 OTHER
     Dates: start: 20191119, end: 20191119
  28. LISINOPRIL. [Concomitant]
     Active Substance: LISINOPRIL
     Indication: HYPERTENSION
     Route: 048
     Dates: start: 20191122, end: 20191122
  29. LISINOPRIL. [Concomitant]
     Active Substance: LISINOPRIL
     Route: 048
     Dates: start: 20191123, end: 20191124
  30. LISINOPRIL. [Concomitant]
     Active Substance: LISINOPRIL
     Route: 048
     Dates: start: 20191125
  31. HEPARIN [Concomitant]
     Active Substance: HEPARIN SODIUM
     Route: 058
     Dates: start: 20191121, end: 20191211
  32. HYDRALAZINE [Concomitant]
     Active Substance: HYDRALAZINE HYDROCHLORIDE
     Route: 042
     Dates: start: 20191120, end: 20191125
  33. VERSED [Concomitant]
     Active Substance: MIDAZOLAM HYDROCHLORIDE
     Indication: SEDATIVE THERAPY
     Route: 042
     Dates: start: 20191118, end: 20191118
  34. BACLOFEN. [Concomitant]
     Active Substance: BACLOFEN
     Indication: MUSCLE SPASTICITY
     Route: 048
     Dates: start: 20191126
  35. ACETAMINOPHEN. [Concomitant]
     Active Substance: ACETAMINOPHEN
     Route: 048
     Dates: start: 20200218, end: 20200218

REACTIONS (1)
  - Labile blood pressure [Recovered/Resolved]

NARRATIVE: CASE EVENT DATE: 20191118
